FAERS Safety Report 4407470-3 (Version None)
Quarter: 2004Q3

REPORT INFORMATION
  Report Type: 
  Country: None (occurrence: None)
  Receive Date: 20040721
  Receipt Date: 20040707
  Transmission Date: 20050211
  Serious: Yes (Other)
  Sender: FDA-Public Use
  Company Number: US_980909774

PATIENT
  Age: 77 Year
  Sex: Female
  Weight: 51 kg

DRUGS (7)
  1. HUMALOG [Suspect]
     Indication: DIABETES MELLITUS INSULIN-DEPENDENT
     Dates: start: 19960101
  2. HUMULIN N [Suspect]
     Indication: DIABETES MELLITUS INSULIN-DEPENDENT
     Dosage: 20 U/1 DAY
     Dates: start: 19850101
  3. HUMULIN-HUMAN INSULIN (RDNA):  30% REGULAR, 70% NPH (H [Suspect]
  4. FOSAMAX [Concomitant]
  5. FLONASE [Concomitant]
  6. ASPIRIN [Concomitant]
  7. TIAZAC [Concomitant]

REACTIONS (6)
  - ARRHYTHMIA [None]
  - BLOOD GLUCOSE DECREASED [None]
  - BLOOD GLUCOSE INCREASED [None]
  - PHARMACEUTICAL PRODUCT COMPLAINT [None]
  - PRURITUS [None]
  - RHINITIS ALLERGIC [None]
